FAERS Safety Report 9518286 (Version 1)
Quarter: 2013Q1

REPORT INFORMATION
  Report Type: Spontaneous
  Country: US (occurrence: None)
  Receive Date: 20130305
  Receipt Date: 20130305
  Transmission Date: 20140127
  Serious: Yes (Other)
  Sender: FDA-Public Use
  Company Number: 163-21880-12070632

PATIENT
  Age: 81 Year
  Sex: Female

DRUGS (4)
  1. REVLIMID (LENALIDOMIDE) (CAPSULES) [Suspect]
     Indication: PLASMA CELL MYELOMA
     Dosage: 5 MG, Q MON, WED, FRI X 2 WEEKS ON, 1 WEEK OFF, PO
     Route: 048
     Dates: start: 20080211
  2. MICARDIS (TELMISARTAN) (UNKNOWN) [Concomitant]
  3. AUGMENTIN (CLAVULIN) (UNKNOWN) [Concomitant]
  4. PLAVIX (CLOPIDOGREL SULFATE) (UNKNOWN) [Concomitant]

REACTIONS (1)
  - Drug dose omission [None]
